FAERS Safety Report 23533441 (Version 2)
Quarter: 2024Q1

REPORT INFORMATION
  Report Type: Report from Study
  Country: JP (occurrence: JP)
  Receive Date: 20240216
  Receipt Date: 20240229
  Transmission Date: 20240410
  Serious: Yes (Other)
  Sender: FDA-Public Use
  Company Number: JP-RADIUS HEALTH INC.-2024JP000913

PATIENT
  Age: 55 Year
  Sex: Male

DRUGS (3)
  1. ABALOPARATIDE [Suspect]
     Active Substance: ABALOPARATIDE
     Indication: Osteoporosis
     Dosage: 80 MICROGRAM
     Route: 058
     Dates: start: 20240122
  2. ERGOCALCIFEROL\RETINOL [Concomitant]
     Active Substance: ERGOCALCIFEROL\RETINOL
     Indication: Product used for unknown indication
     Dosage: UNK
  3. ELDECALCITOL [Concomitant]
     Active Substance: ELDECALCITOL
     Indication: Osteoporosis
     Dosage: UNK
     Route: 048
     Dates: start: 20240205

REACTIONS (3)
  - Cold sweat [Recovered/Resolved]
  - Oedema [Recovered/Resolved]
  - Shock [Recovered/Resolved]

NARRATIVE: CASE EVENT DATE: 20240123
